FAERS Safety Report 8647052 (Version 3)
Quarter: 2012Q4

REPORT INFORMATION
  Report Type: 
  Country: NL (occurrence: NL)
  Receive Date: 20120703
  Receipt Date: 20121030
  Transmission Date: 20130627
  Serious: Yes (Death, Other)
  Sender: FDA-Public Use
  Company Number: PHHY2012NL043000

PATIENT
  Age: 69 None
  Sex: Male

DRUGS (6)
  1. ZOMETA [Suspect]
     Indication: RENAL CELL CARCINOMA
     Dosage: 4mg/100ml solution for iv infusion (peripheral 4mg/100ml) once per 42 days
     Dates: start: 20080702
  2. ZOMETA [Suspect]
     Dosage: 4mg/100ml solution for iv infusion (peripheral 4mg/100ml) once per 42 days
     Dates: start: 20120405
  3. ZOMETA [Suspect]
     Dosage: 4mg/100ml solution for iv infusion (peripheral 4mg/100ml) once per 42 days
     Dates: start: 20120516
  4. ZOMETA [Suspect]
     Dosage: 4mg/100ml solution for iv infusion (peripheral 320ml/h) once per 42 days
     Dates: start: 20120628
  5. ZOMETA [Suspect]
     Dosage: 4mg/100ml solution for iv infusion (peripheral 320ml/h) once per 42 days
     Dates: start: 20120809
  6. ZOMETA [Suspect]
     Dosage: 4mg/100ml solution for iv infusion (peripheral 320ml/h) once per 42 days
     Dates: start: 20120920

REACTIONS (8)
  - Death [Fatal]
  - Haemoptysis [Not Recovered/Not Resolved]
  - Pallor [Not Recovered/Not Resolved]
  - Cough [Not Recovered/Not Resolved]
  - Fatigue [Not Recovered/Not Resolved]
  - Asthenia [Not Recovered/Not Resolved]
  - Decreased appetite [Not Recovered/Not Resolved]
  - Malaise [Not Recovered/Not Resolved]
